FAERS Safety Report 14742684 (Version 1)
Quarter: 2018Q2

REPORT INFORMATION
  Report Type: Spontaneous
  Country: US (occurrence: US)
  Receive Date: 20180410
  Receipt Date: 20180410
  Transmission Date: 20180711
  Serious: Yes (Other)
  Sender: FDA-Public Use
  Company Number: US-INDIVIOR LIMITED-INDV-110102-2018

PATIENT
  Sex: Male

DRUGS (1)
  1. SUBOXONE [Suspect]
     Active Substance: BUPRENORPHINE HYDROCHLORIDE\NALOXONE HYDROCHLORIDE
     Indication: DRUG DEPENDENCE
     Dosage: UNK
     Route: 065
     Dates: start: 2009

REACTIONS (5)
  - Pain [Unknown]
  - Cardiac disorder [Unknown]
  - Adverse event [Unknown]
  - Therapeutic product ineffective [Unknown]
  - Tremor [Unknown]

NARRATIVE: CASE EVENT DATE: 2015
